FAERS Safety Report 8315203-3 (Version None)
Quarter: 2012Q2

REPORT INFORMATION
  Report Type: 
  Country: None (occurrence: None)
  Receive Date: 20120426
  Receipt Date: 20120418
  Transmission Date: 20120825
  Serious: Yes (Hospitalization)
  Sender: FDA-Public Use
  Company Number: US-BAYER-2011-102860

PATIENT
  Age: 40 Year
  Sex: Female
  Weight: 63.492 kg

DRUGS (12)
  1. CEFUROXIME AXETIL [Concomitant]
     Indication: BACTERIAL INFECTION
     Dosage: 250 MG,1 TAB BID
     Dates: start: 20091016
  2. NSAID'S [Concomitant]
     Dosage: UNK
     Dates: start: 20090902
  3. YAZ [Suspect]
     Route: 048
  4. YASMIN [Suspect]
     Indication: PREMENSTRUAL SYNDROME
  5. SKELAXIN [Concomitant]
     Dosage: 800 MG, 1 TABTID
     Route: 048
     Dates: start: 20090902
  6. YASMIN [Suspect]
     Indication: CONTRACEPTION
     Dosage: UNK
     Route: 048
     Dates: start: 20090906, end: 20091020
  7. IBUPROFEN [Concomitant]
     Indication: PAIN IN EXTREMITY
  8. SULFAMETHOXAZOLE + TRIMETHOPRIM [Concomitant]
     Indication: BACTERIAL INFECTION
     Dosage: UNK UNK, BID
     Dates: start: 20090916
  9. YASMIN [Suspect]
     Indication: MENORRHAGIA
  10. IBUPROFEN [Concomitant]
     Indication: ARTHRALGIA
     Dosage: 8600 MG,1 TAB Q6 PRN
     Dates: start: 20090902
  11. GARDASIL [Concomitant]
     Dosage: UNK
     Dates: start: 20090902
  12. HYDROCODONE BITARTRATE AND ACETAMINOPHEN [Concomitant]
     Indication: PAIN

REACTIONS (3)
  - DEEP VEIN THROMBOSIS [None]
  - PAIN [None]
  - INJURY [None]
